FAERS Safety Report 13574898 (Version 1)
Quarter: 2017Q2

REPORT INFORMATION
  Report Type: Report from Study
  Country: US (occurrence: US)
  Receive Date: 20170523
  Receipt Date: 20170523
  Transmission Date: 20170830
  Serious: Yes (Hospitalization, Other)
  Sender: FDA-Public Use
  Company Number: US-BIOGEN-2010BI008918

PATIENT
  Age: 38 Year
  Sex: Female

DRUGS (3)
  1. TYSABRI [Suspect]
     Active Substance: NATALIZUMAB
     Indication: MULTIPLE SCLEROSIS
     Route: 042
     Dates: start: 20100127, end: 201002
  2. RESERPINE. [Concomitant]
     Active Substance: RESERPINE
     Indication: HYPOTENSION
     Route: 065
  3. TYSABRI [Suspect]
     Active Substance: NATALIZUMAB
     Route: 042
     Dates: start: 201004

REACTIONS (17)
  - Contusion [Recovered/Resolved]
  - Electroencephalogram abnormal [Recovered/Resolved]
  - Pain [Recovered/Resolved]
  - Visual impairment [Recovered/Resolved]
  - Musculoskeletal disorder [Recovered/Resolved]
  - Hypotension [Not Recovered/Not Resolved]
  - Gallbladder disorder [Recovered/Resolved]
  - Rash vesicular [Recovered/Resolved]
  - Multiple sclerosis relapse [Recovered/Resolved]
  - Coma [Recovered/Resolved]
  - Hypothyroidism [Not Recovered/Not Resolved]
  - Dysphagia [Not Recovered/Not Resolved]
  - Hemiparesis [Not Recovered/Not Resolved]
  - Dyspnoea [Recovered/Resolved]
  - Clumsiness [Not Recovered/Not Resolved]
  - Fatigue [Not Recovered/Not Resolved]
  - Cardiac arrest [Recovered/Resolved]

NARRATIVE: CASE EVENT DATE: 2010
